FAERS Safety Report 25952770 (Version 1)
Quarter: 2025Q4

REPORT INFORMATION
  Report Type: Report from Study
  Country: EU (occurrence: EU)
  Receive Date: 20251023
  Receipt Date: 20251023
  Transmission Date: 20260118
  Serious: Yes (Hospitalization)
  Sender: ABBVIE
  Company Number: EU-ABBVIE-6511662

PATIENT
  Sex: Female

DRUGS (4)
  1. CARBIDOPA\LEVODOPA [Suspect]
     Active Substance: CARBIDOPA\LEVODOPA
     Indication: Parkinson^s disease
     Dosage: MD: 3.0ML CR: 4.2ML/H (HG) + 3.8ML/H (NOSE) ED: 3.3ML 24-HOUR ADMINISTRATION
     Route: 050
     Dates: start: 20211201, end: 20251018
  2. CARBIDOPA\LEVODOPA [Suspect]
     Active Substance: CARBIDOPA\LEVODOPA
     Dosage: CR WAS CHANGED TO 4.6ML IN THE MORNING AND EVENING (FROM 4.2 IN THE MORNING AND 3.8 AT NIGHT)., M...
     Route: 050
     Dates: start: 20251018, end: 20251019
  3. CARBIDOPA\LEVODOPA [Suspect]
     Active Substance: CARBIDOPA\LEVODOPA
     Dosage: ED INCREASED FROM 3.0 TO 3.3ML, MD: 3.0ML CR: 4.6ML/H (DAY) + 4.6ML/H (NIGHT) ED: 3.3ML 24-HOUR A...
     Route: 050
     Dates: start: 20251019, end: 20251020
  4. CARBIDOPA\LEVODOPA [Suspect]
     Active Substance: CARBIDOPA\LEVODOPA
     Dosage: INCREASED THE CR DOSE TO 4.8ML,  MD: 3.0ML CR: 4.8ML/H (DAY) + 4.8ML/H (NIGHT) ED: 3.3ML 24-HOUR ...
     Route: 050
     Dates: start: 20251020

REACTIONS (2)
  - On and off phenomenon [Recovering/Resolving]
  - Malaise [Unknown]
